FAERS Safety Report 20808850 (Version 5)
Quarter: 2022Q3

REPORT INFORMATION
  Report Type: Spontaneous
  Country: US (occurrence: US)
  Receive Date: 20220510
  Receipt Date: 20220714
  Transmission Date: 20221027
  Serious: Yes (Hospitalization, Other)
  Sender: FDA-Public Use
  Company Number: US-UNITED THERAPEUTICS-UNT-2022-008078

PATIENT
  Sex: Female

DRUGS (4)
  1. REMODULIN [Suspect]
     Active Substance: TREPROSTINIL
     Indication: Pulmonary arterial hypertension
     Dosage: UNK UNK, CONTINUING
     Route: 058
     Dates: start: 20220126
  2. REMODULIN [Suspect]
     Active Substance: TREPROSTINIL
     Dosage: 0.0287 ?G/KG, CONTINUING
     Route: 058
     Dates: start: 2022, end: 2022
  3. REMODULIN [Suspect]
     Active Substance: TREPROSTINIL
     Dosage: 0.0307 ?G/KG, CONTINUING
     Route: 058
     Dates: start: 2022, end: 2022
  4. REMODULIN [Suspect]
     Active Substance: TREPROSTINIL
     Dosage: UNK (DOSE RESTARTED), CONTINUING
     Route: 058
     Dates: start: 2022

REACTIONS (8)
  - Pulmonary arterial hypertension [Unknown]
  - Infusion site pain [Not Recovered/Not Resolved]
  - Swelling [Not Recovered/Not Resolved]
  - Infusion site swelling [Unknown]
  - Therapy non-responder [Unknown]
  - Device malfunction [Unknown]
  - Device data issue [Unknown]
  - Product administration interrupted [Recovered/Resolved]

NARRATIVE: CASE EVENT DATE: 20220101
